FAERS Safety Report 16434198 (Version 1)
Quarter: 2019Q2

REPORT INFORMATION
  Report Type: Spontaneous
  Country: US (occurrence: US)
  Receive Date: 20190614
  Receipt Date: 20190614
  Transmission Date: 20190711
  Serious: Yes (Other)
  Sender: FDA-Public Use
  Company Number: US-JNJFOC-20190608301

PATIENT
  Age: 81 Year
  Sex: Female
  Weight: 100.7 kg

DRUGS (1)
  1. DOXIL [Suspect]
     Active Substance: DOXORUBICIN HYDROCHLORIDE
     Indication: BREAST CANCER METASTATIC
     Route: 042
     Dates: start: 20180709, end: 20190509

REACTIONS (5)
  - White blood cell count decreased [Unknown]
  - Breast cancer metastatic [Unknown]
  - Dental care [Unknown]
  - Adverse event [Unknown]
  - Infection [Unknown]

NARRATIVE: CASE EVENT DATE: 20190509
